FAERS Safety Report 10913109 (Version 1)
Quarter: 2015Q1

REPORT INFORMATION
  Report Type: Spontaneous
  Country: IT (occurrence: IT)
  Receive Date: 20150313
  Receipt Date: 20150313
  Transmission Date: 20150721
  Serious: Yes (Other)
  Sender: FDA-Public Use
  Company Number: IT-PFIZER INC-2015090620

PATIENT
  Age: 44 Year
  Sex: Male

DRUGS (1)
  1. CEFODOX [Suspect]
     Active Substance: CEFPODOXIME PROXETIL
     Dosage: UNK
     Route: 065
     Dates: start: 20141116

REACTIONS (1)
  - Labyrinthitis [Unknown]

NARRATIVE: CASE EVENT DATE: 20141117
